FAERS Safety Report 9933834 (Version 2)
Quarter: 2014Q1

REPORT INFORMATION
  Report Type: Spontaneous
  Country: IT (occurrence: None)
  Receive Date: 20140226
  Receipt Date: 20140313
  Transmission Date: 20141002
  Serious: Yes (Other)
  Sender: FDA-Public Use
  Company Number: AUR-APL-2014-00583

PATIENT
  Age: 82 Year
  Sex: Male

DRUGS (4)
  1. LEVOFLOXACIN (LEVOFLOXACIN) [Suspect]
     Indication: BRONCHITIS
     Route: 048
     Dates: start: 20131005, end: 20131005
  2. TRIATEC (PANADEINE CO) [Concomitant]
  3. LANTUS (INSULIN GLARGINE) [Concomitant]
  4. NOVONORM (REPAGLINIDE) [Concomitant]

REACTIONS (3)
  - Erythema [None]
  - Hypersensitivity [None]
  - Pruritus generalised [None]
